FAERS Safety Report 6551038-X (Version None)
Quarter: 2010Q1

REPORT INFORMATION
  Report Type: 
  Country: None (occurrence: None)
  Receive Date: 20100122
  Receipt Date: 20100122
  Transmission Date: 20100710
  Serious: No
  Sender: FDA-Public Use
  Company Number: None

PATIENT
  Age: 49 Year
  Sex: Female
  Weight: 65.7716 kg

DRUGS (1)
  1. ZICAM ALLERGY RELIEF GEL SWABS NOT LISTED MATRIX INITIATIVES [Suspect]
     Indication: HYPERSENSITIVITY
     Dosage: SWAB ONCE EVERY 4 HOUR NASAL
     Route: 045
     Dates: start: 20070424, end: 20080530

REACTIONS (2)
  - ANOSMIA [None]
  - PRODUCT QUALITY ISSUE [None]
